FAERS Safety Report 11747760 (Version 1)
Quarter: 2015Q4

REPORT INFORMATION
  Report Type: Spontaneous
  Country: FR (occurrence: None)
  Receive Date: 20151117
  Receipt Date: 20151117
  Transmission Date: 20160304
  Serious: Yes (Life-Threatening, Hospitalization, Other)
  Sender: FDA-Public Use
  Company Number: FR-MDT-ADR-2015-02171

PATIENT
  Age: 29 Year
  Sex: Female

DRUGS (2)
  1. DESLORATIDINE (ORAL) [Suspect]
     Active Substance: DESLORATADINE
     Dosage: 150MG
  2. BACLOFEN (ORAL) [Suspect]
     Active Substance: BACLOFEN
     Dosage: 3,500MG

REACTIONS (11)
  - Overdose [None]
  - Drug level increased [None]
  - Haemodialysis [None]
  - Sedation [None]
  - Miosis [None]
  - Bezoar [None]
  - Gastrointestinal hypomotility [None]
  - Electroencephalogram abnormal [None]
  - Coma [None]
  - Seizure [None]
  - Toxicity to various agents [None]
